FAERS Safety Report 7432798-2 (Version None)
Quarter: 2011Q2

REPORT INFORMATION
  Report Type: 
  Country: None (occurrence: None)
  Receive Date: 20110422
  Receipt Date: 20110413
  Transmission Date: 20111010
  Serious: Yes (Hospitalization)
  Sender: FDA-Public Use
  Company Number: FR-ROCHE-696295

PATIENT
  Sex: Male
  Weight: 23.6 kg

DRUGS (6)
  1. BEVACIZUMAB [Suspect]
     Indication: SARCOMA METASTATIC
     Dosage: LAST DOSE PRIOR TO SAE: 22 MARCH 2010.
     Route: 042
     Dates: start: 20100322
  2. VINCRISTINE [Suspect]
     Indication: SARCOMA METASTATIC
     Dosage: LAST DOSE PRIOR TO SAE: 22 MARCH 2010.
     Route: 042
     Dates: start: 20100322
  3. IFOSFAMIDE [Suspect]
     Indication: SARCOMA METASTATIC
     Dosage: TOTAL DOSE: 5.8GM.  LAST DOSE PRIOR TO SAE: 23 MARCH 2010.
     Route: 042
     Dates: start: 20100322
  4. TIENAM [Concomitant]
     Dates: start: 20100403, end: 20100406
  5. DOXORUBICIN [Suspect]
     Indication: SARCOMA METASTATIC
     Dosage: LAST DOSE PRIOR TO SAE: 23 MARCH 2010.
     Route: 042
     Dates: start: 20100322
  6. ACTINOMYCIN D [Suspect]
     Indication: SARCOMA METASTATIC
     Dosage: LAST DOSE PRIOR TO SAE: 22 MARCH 2010. DRUG: ACYINOMYCIN D.
     Route: 042
     Dates: start: 20100322

REACTIONS (1)
  - MUCOSAL INFLAMMATION [None]
